FAERS Safety Report 5213827-3 (Version None)
Quarter: 2007Q1

REPORT INFORMATION
  Report Type: 
  Country: None (occurrence: None)
  Receive Date: 20070119
  Receipt Date: 20070109
  Transmission Date: 20070707
  Serious: Yes (Hospitalization, Other)
  Sender: FDA-Public Use
  Company Number: US-PFIZER INC-2005094528

PATIENT
  Sex: Female

DRUGS (4)
  1. NEURONTIN [Suspect]
     Indication: TRIGEMINAL NEURALGIA
  2. NEURONTIN [Suspect]
     Indication: POST-TRAUMATIC STRESS DISORDER
  3. TYLENOL [Suspect]
  4. PAXIL [Concomitant]
     Route: 048

REACTIONS (9)
  - AGORAPHOBIA [None]
  - DEPRESSION [None]
  - DRUG INEFFECTIVE [None]
  - FLASHBACK [None]
  - HALLUCINATION, VISUAL [None]
  - INJURY [None]
  - MULTIPLE DRUG OVERDOSE INTENTIONAL [None]
  - POST-TRAUMATIC STRESS DISORDER [None]
  - SUICIDE ATTEMPT [None]
